FAERS Safety Report 10380319 (Version 1)
Quarter: 2014Q1

REPORT INFORMATION
  Report Type: Spontaneous
  Country: US (occurrence: None)
  Receive Date: 20140306
  Receipt Date: 20140306
  Transmission Date: 20141002
  Serious: Yes (Other)
  Sender: FDA-Public Use
  Company Number: 163-21880-13102233

PATIENT
  Age: 73 Year
  Sex: Male
  Weight: 64.41 kg

DRUGS (27)
  1. REVLIMID (LENALIDOMIDE) (25 MILLIGRAM, CAPSULES) [Suspect]
     Indication: PLASMA CELL MYELOMA
     Dosage: 25 MG, 21 IN 21 D, PO?
     Route: 048
     Dates: start: 20120101
  2. ATIVAN (LOREZEPAM) [Concomitant]
  3. LASIX (FUROSEMIDE) [Concomitant]
  4. LEVAQUIN (LEVOFLOXACIN) [Concomitant]
  5. CARDURA (DOXAZOSIN MESILATE) [Concomitant]
  6. REMERON (MIRTAZAPINE) [Concomitant]
  7. AMLODIPINE BESYLATE (AMLODIPINE BESILATE) [Concomitant]
  8. FLUTICASONE PROPIONATE [Concomitant]
  9. VICODIN ES (VICODIN) [Concomitant]
  10. ALBUTEROL (SALBUTAMOL) [Concomitant]
  11. ARICEPT (DONEPEZIL HYDROCHLORIDE) [Concomitant]
  12. BABY ASPIRIN (ACETYLSALICYLIC ACID) [Concomitant]
  13. CARAFATE (SUCRALFATE) TABLET, 1G [Concomitant]
  14. CELEXA (CITALOPRAM HYDROBROMIDE) [Concomitant]
  15. CLONAZEPAM [Concomitant]
  16. DOXAZOSIN [Concomitant]
  17. LANTUS (INSULIN GLARGINE) [Concomitant]
  18. LISINOPRIL [Concomitant]
  19. METFORMIN [Concomitant]
  20. NYSTATIN [Concomitant]
  21. OCEAN [Concomitant]
  22. OMEPRAZOLE [Concomitant]
  23. SPIRIVA (TIOTROPIUM BROMIDE) [Concomitant]
  24. SYMBICORT (SYMBICORT TURBUHALER ^DRACO^) [Concomitant]
  25. VENLAFAXINE [Concomitant]
  26. XOPENEX (LEVOSALBUTAMOL) [Concomitant]
  27. ZOFRAN (ONDANSETRON HYDROCHLORIDE) [Concomitant]

REACTIONS (3)
  - Increased upper airway secretion [None]
  - Osteopenia [None]
  - Lower respiratory tract inflammation [None]
